FAERS Safety Report 12378302 (Version 1)
Quarter: 2016Q2

REPORT INFORMATION
  Report Type: Spontaneous
  Country: US (occurrence: US)
  Receive Date: 20160517
  Receipt Date: 20160517
  Transmission Date: 20160815
  Serious: No
  Sender: FDA-Public Use
  Company Number: US-JNJFOC-20160416032

PATIENT
  Age: 50 Year
  Sex: Female

DRUGS (1)
  1. TYLENOL EXTRA STRENGTH [Suspect]
     Active Substance: ACETAMINOPHEN
     Indication: PRODUCT USED FOR UNKNOWN INDICATION
     Dosage: ONE CAPLET ONCE
     Route: 048

REACTIONS (3)
  - Incorrect dose administered [Recovered/Resolved]
  - Feeling abnormal [Recovered/Resolved]
  - Anxiety [Recovered/Resolved]
